FAERS Safety Report 5419050-1 (Version None)
Quarter: 2007Q3

REPORT INFORMATION
  Report Type: 
  Country: None (occurrence: None)
  Receive Date: 20070820
  Receipt Date: 20070816
  Transmission Date: 20080115
  Serious: Yes (Death)
  Sender: FDA-Public Use
  Company Number: PHBS2007BR13665

PATIENT
  Age: 50 Year
  Sex: Male

DRUGS (2)
  1. CAPTOPRIL [Concomitant]
  2. APRESOLINE [Suspect]
     Indication: HYPERTENSION
     Route: 048

REACTIONS (2)
  - DEATH [None]
  - PAIN [None]
